FAERS Safety Report 23124237 (Version 2)
Quarter: 2024Q1

REPORT INFORMATION
  Report Type: Spontaneous
  Country: US (occurrence: US)
  Receive Date: 20231030
  Receipt Date: 20240212
  Transmission Date: 20240409
  Serious: Yes (Other)
  Sender: FDA-Public Use
  Company Number: US-BAYER-2023A150642

PATIENT

DRUGS (1)
  1. ASPIRIN [Suspect]
     Active Substance: ASPIRIN

REACTIONS (4)
  - Cerebral haemorrhage [Unknown]
  - Cytokine storm [Recovered/Resolved]
  - Secondary hypertension [None]
  - Drug intolerance [None]
